FAERS Safety Report 16709203 (Version 2)
Quarter: 2019Q3

REPORT INFORMATION
  Report Type: Report from Study
  Country: PE (occurrence: PE)
  Receive Date: 20190816
  Receipt Date: 20190822
  Transmission Date: 20191004
  Serious: Yes (Hospitalization, Other)
  Sender: FDA-Public Use
  Company Number: PHHY2019PE187352

PATIENT
  Sex: Female

DRUGS (1)
  1. TASIGNA [Suspect]
     Active Substance: NILOTINIB
     Indication: CHRONIC MYELOID LEUKAEMIA
     Dosage: 800 MG, QD
     Route: 048
     Dates: start: 20180423

REACTIONS (5)
  - Gastric cancer [Unknown]
  - Second primary malignancy [Unknown]
  - Inappropriate schedule of product administration [Unknown]
  - Neoplasm [Unknown]
  - Gastric disorder [Not Recovered/Not Resolved]
